FAERS Safety Report 12526755 (Version 1)
Quarter: 2016Q3

REPORT INFORMATION
  Report Type: Spontaneous
  Country: US (occurrence: None)
  Receive Date: 20160701
  Receipt Date: 20160701
  Transmission Date: 20161109
  Serious: Yes (Hospitalization)
  Sender: FDA-Public Use
  Company Number: None

PATIENT
  Age: 65 Year
  Sex: Female

DRUGS (13)
  1. CITALOPRAM [Concomitant]
     Active Substance: CITALOPRAM HYDROBROMIDE
  2. HYDROMORPHONE [Concomitant]
     Active Substance: HYDROMORPHONE
  3. GABAPENTIN. [Concomitant]
     Active Substance: GABAPENTIN
  4. BACLOFEN. [Concomitant]
     Active Substance: BACLOFEN
  5. DULOXETINE. [Concomitant]
     Active Substance: DULOXETINE
  6. NIFEPDIPINE [Concomitant]
  7. AMPYRA [Suspect]
     Active Substance: DALFAMPRIDINE
     Indication: MULTIPLE SCLEROSIS
     Route: 048
     Dates: start: 201106
  8. METHYPHENIDATE [Concomitant]
  9. DIAZEPAM. [Concomitant]
     Active Substance: DIAZEPAM
  10. MELOXICAM. [Concomitant]
     Active Substance: MELOXICAM
  11. BUPROPION. [Concomitant]
     Active Substance: BUPROPION
  12. ALENDRONATE [Concomitant]
     Active Substance: ALENDRONATE SODIUM
  13. CEPHALEXIN. [Concomitant]
     Active Substance: CEPHALEXIN

REACTIONS (7)
  - Breast conserving surgery [None]
  - Pyrexia [None]
  - Breast pain [None]
  - Erythema [None]
  - Breast swelling [None]
  - Post procedural infection [None]
  - Staphylococcal infection [None]

NARRATIVE: CASE EVENT DATE: 20160603
